FAERS Safety Report 8164564-7 (Version None)
Quarter: 2012Q1

REPORT INFORMATION
  Report Type: 
  Country: None (occurrence: None)
  Receive Date: 20120226
  Receipt Date: 20120213
  Transmission Date: 20120608
  Serious: Yes (Hospitalization)
  Sender: FDA-Public Use
  Company Number: AU-BRISTOL-MYERS SQUIBB COMPANY-16375727

PATIENT
  Age: 66 Year
  Sex: Male

DRUGS (11)
  1. ASPIRIN [Concomitant]
     Dates: start: 20101101
  2. ATIVAN [Concomitant]
     Dates: start: 20111116
  3. BMS754807 [Suspect]
     Indication: NEOPLASM
     Dosage: 22DEC11-4JAN12(100 MG)ORAL LAST DOSE ON 05JAN2012;CY4(TOT)
     Route: 048
     Dates: start: 20111103
  4. PACLITAXEL [Suspect]
     Indication: NEOPLASM
     Dosage: INTERRUPTED ON 30JAN12,(LAST DOSE) CYCLE 4(282.5MG;IV)
     Route: 042
     Dates: start: 20111102
  5. PERINDOPRIL ERBUMINE [Concomitant]
     Dates: start: 20101029
  6. METOCLOPRAMIDE [Concomitant]
     Dates: start: 20111103
  7. CIPROFLOXACIN [Concomitant]
     Dates: start: 20111213
  8. LIPITOR [Concomitant]
     Dates: start: 20101101
  9. CARBOPLATIN [Suspect]
     Indication: NEOPLASM
     Dosage: INTERRUPTED ON 30JAN12,CYCLE 4(565MGIV)
     Route: 042
     Dates: start: 20111102
  10. BUPRENORPHINE [Concomitant]
     Dosage: PATCH
     Dates: start: 20110907
  11. NEXIUM [Concomitant]
     Dates: start: 20111116

REACTIONS (1)
  - ACUTE CORONARY SYNDROME [None]
